FAERS Safety Report 4732673-8 (Version None)
Quarter: 2005Q3

REPORT INFORMATION
  Report Type: 
  Country: None (occurrence: None)
  Receive Date: 20050803
  Receipt Date: 20050510
  Transmission Date: 20060218
  Serious: Yes (Death, Other)
  Sender: FDA-Public Use
  Company Number: PHNU2005DE01901

PATIENT
  Age: 66 Year
  Sex: Male
  Weight: 100 kg

DRUGS (4)
  1. METOPIRONE [Suspect]
     Indication: HYPERCORTICOIDISM
     Route: 048
     Dates: start: 20050502, end: 20050509
  2. METOPIRONE [Suspect]
     Route: 048
     Dates: start: 20050510, end: 20050510
  3. METOPIRONE [Suspect]
     Route: 048
     Dates: start: 20050511, end: 20050726
  4. METOPIRONE [Suspect]
     Route: 048
     Dates: start: 20050726, end: 20050726

REACTIONS (2)
  - CONDITION AGGRAVATED [None]
  - THROMBOCYTOPENIA [None]
